FAERS Safety Report 10176212 (Version 1)
Quarter: 2014Q2

REPORT INFORMATION
  Report Type: Spontaneous
  Country: IT (occurrence: IT)
  Receive Date: 20140516
  Receipt Date: 20140516
  Transmission Date: 20141212
  Serious: Yes (Hospitalization)
  Sender: FDA-Public Use
  Company Number: IT-RANBAXY-2014RR-81124

PATIENT
  Age: 59 Year
  Sex: Female

DRUGS (1)
  1. AMOXICILLIN/CLAVULANIC ACID [Suspect]
     Indication: TOOTHACHE
     Dosage: 1G COMPLETE
     Route: 048
     Dates: start: 20140219, end: 20140219

REACTIONS (1)
  - Anaphylactic shock [Recovered/Resolved]
